FAERS Safety Report 23114328 (Version 1)
Quarter: 2023Q4

REPORT INFORMATION
  Report Type: Spontaneous
  Country: US (occurrence: US)
  Receive Date: 20231027
  Receipt Date: 20231027
  Transmission Date: 20240110
  Serious: Yes (Life-Threatening, Hospitalization)
  Sender: FDA-Public Use
  Company Number: US-AMGEN-USASP2023187225

PATIENT
  Age: 46 Year
  Sex: Male

DRUGS (4)
  1. EPOETIN ALFA [Suspect]
     Active Substance: ERYTHROPOIETIN
     Indication: Anaemia
     Dosage: 10000 UNIT
     Route: 065
  2. VITAMIN C [Concomitant]
     Active Substance: ASCORBIC ACID
     Indication: Anaemia
  3. FOLIC ACID [Concomitant]
     Active Substance: FOLIC ACID
     Indication: Anaemia
  4. HEPARIN [Concomitant]
     Active Substance: HEPARIN SODIUM
     Indication: Splenic vein thrombosis

REACTIONS (4)
  - Anaemia [Recovering/Resolving]
  - Intra-abdominal haematoma [Recovering/Resolving]
  - Tachycardia [Recovering/Resolving]
  - Tachypnoea [Recovering/Resolving]
